FAERS Safety Report 10560952 (Version 4)
Quarter: 2015Q2

REPORT INFORMATION
  Report Type: Spontaneous
  Country: JP (occurrence: JP)
  Receive Date: 20141103
  Receipt Date: 20150415
  Transmission Date: 20150821
  Serious: Yes (Other)
  Sender: FDA-Public Use
  Company Number: JP-JNJFOC-20141017222

PATIENT
  Age: 64 Year
  Sex: Male

DRUGS (8)
  1. XARELTO [Suspect]
     Active Substance: RIVAROXABAN
     Indication: THROMBOSIS PROPHYLAXIS
     Route: 048
     Dates: end: 20121002
  2. XARELTO [Suspect]
     Active Substance: RIVAROXABAN
     Indication: CEREBROVASCULAR ACCIDENT PROPHYLAXIS
     Route: 048
     Dates: end: 20121002
  3. AVAPRO [Concomitant]
     Active Substance: IRBESARTAN
     Indication: HYPERTENSION
     Route: 048
  4. XARELTO [Suspect]
     Active Substance: RIVAROXABAN
     Indication: ATRIAL FIBRILLATION
     Route: 048
     Dates: end: 20121002
  5. VOLTAREN [Concomitant]
     Active Substance: DICLOFENAC SODIUM
     Route: 048
  6. XARELTO [Suspect]
     Active Substance: RIVAROXABAN
     Indication: ANTICOAGULANT THERAPY
     Route: 048
     Dates: end: 20121002
  7. GLACTIV [Concomitant]
     Active Substance: SITAGLIPTIN
     Indication: DIABETES MELLITUS
     Route: 048
  8. TAKEPRON [Concomitant]
     Active Substance: LANSOPRAZOLE
     Route: 048

REACTIONS (1)
  - Deep vein thrombosis [Recovered/Resolved]

NARRATIVE: CASE EVENT DATE: 20120930
